FAERS Safety Report 6512085-7 (Version None)
Quarter: 2009Q4

REPORT INFORMATION
  Report Type: 
  Country: None (occurrence: None)
  Receive Date: 20091222
  Receipt Date: 20090529
  Transmission Date: 20100525
  Serious: No
  Sender: FDA-Public Use
  Company Number: US-ASTRAZENECA-2009UW13848

PATIENT
  Age: 63 Year
  Sex: Male
  Weight: 81.6 kg

DRUGS (4)
  1. CRESTOR [Suspect]
     Route: 048
     Dates: start: 20090527
  2. BABY ASPIRIN [Concomitant]
  3. ASCORBIC ACID [Concomitant]
  4. TYLENOL (CAPLET) [Concomitant]

REACTIONS (1)
  - PAIN IN EXTREMITY [None]
